FAERS Safety Report 8541862-6 (Version None)
Quarter: 2012Q3

REPORT INFORMATION
  Report Type: 
  Country: None (occurrence: None)
  Receive Date: 20120726
  Receipt Date: 20110922
  Transmission Date: 20120928
  Serious: No
  Sender: FDA-Public Use
  Company Number: US-ASTRAZENECA-2011SE54643

PATIENT
  Age: 71 Year
  Sex: Female
  Weight: 62.1 kg

DRUGS (2)
  1. LEVOTHYROXINE SODIUM [Concomitant]
     Indication: THYROID DISORDER
  2. SEROQUEL [Suspect]
     Indication: BIPOLAR DISORDER
     Route: 048
     Dates: start: 20050201

REACTIONS (8)
  - EAR INFECTION [None]
  - OSTEITIS [None]
  - MALAISE [None]
  - TOOTHACHE [None]
  - NASOPHARYNGITIS [None]
  - BONE PAIN [None]
  - PAIN IN JAW [None]
  - SINUSITIS [None]
